FAERS Safety Report 9947928 (Version 2)
Quarter: 2014Q1

REPORT INFORMATION
  Report Type: Report from Study
  Country: US (occurrence: US)
  Receive Date: 20140303
  Receipt Date: 20140303
  Transmission Date: 20141002
  Serious: No
  Sender: FDA-Public Use
  Company Number: US-ABBVIE-12P-163-0993735-00

PATIENT
  Age: 67 Year
  Sex: Female
  Weight: 82.63 kg

DRUGS (1)
  1. HUMIRA [Suspect]
     Indication: RHEUMATOID ARTHRITIS
     Route: 058
     Dates: start: 20120927, end: 201212

REACTIONS (1)
  - Asthma [Recovered/Resolved]
